FAERS Safety Report 7652797-5 (Version None)
Quarter: 2011Q3

REPORT INFORMATION
  Report Type: 
  Country: None (occurrence: None)
  Receive Date: 20110802
  Receipt Date: 20110802
  Transmission Date: 20111222
  Serious: No
  Sender: FDA-Public Use
  Company Number: None

PATIENT
  Age: 64 Year
  Sex: Male
  Weight: 68.2 kg

DRUGS (1)
  1. HUMULIN U [Suspect]
     Indication: TYPE 1 DIABETES MELLITUS
     Dosage: 17 UNITS EVERY MORNING SUBCUTANEOUSLY 5 UNITS EVERY EVENING 7P SUBCUTANEOUSLY
     Route: 058
     Dates: start: 20110621, end: 20110729

REACTIONS (2)
  - PRODUCT QUALITY ISSUE [None]
  - DRUG EFFECT INCREASED [None]
